FAERS Safety Report 9382233 (Version 1)
Quarter: 2013Q3

REPORT INFORMATION
  Report Type: Spontaneous
  Country: ES (occurrence: ES)
  Receive Date: 20130703
  Receipt Date: 20130703
  Transmission Date: 20140515
  Serious: Yes (Hospitalization)
  Sender: FDA-Public Use
  Company Number: ES-GILEAD-2013-0078397

PATIENT
  Age: 80 Year
  Sex: Male

DRUGS (14)
  1. RANOLAZINE [Suspect]
     Indication: ISCHAEMIC CARDIOMYOPATHY
     Dosage: 500 MG, BID
     Route: 048
     Dates: start: 201302, end: 201304
  2. ACETYLSALICYLIC ACID [Concomitant]
     Dosage: 100 MG, QD
     Route: 048
  3. VITAMIN C                          /00008001/ [Concomitant]
     Route: 048
  4. ATENOLOL [Concomitant]
     Dosage: 50 MG, QD
     Route: 048
  5. ATORVASTATIN [Concomitant]
     Dosage: 40 MG, QD
     Route: 048
  6. CLOPIDOGREL [Concomitant]
     Dosage: 75 MG, QD
     Route: 048
  7. FOSRENOL [Concomitant]
     Dosage: 750 MG, QID
     Route: 048
  8. HEMOVAS [Concomitant]
     Dosage: 800 MG, QD
     Route: 048
  9. MINITRAN                           /00003201/ [Concomitant]
     Dosage: 10 MG, QD
     Route: 062
  10. OMEPRAZOLE [Concomitant]
     Dosage: 20 MG, QD
     Route: 048
  11. IVABRADINE [Concomitant]
     Dosage: 15 MG, QD
     Route: 048
  12. RESINCALCIO [Concomitant]
     Route: 048
  13. TRAMADOL [Concomitant]
     Dosage: 100 MG, QD
     Route: 048
  14. ZOLPIDEM [Concomitant]
     Dosage: 5 MG, QD
     Route: 048

REACTIONS (3)
  - Dysphagia [Recovered/Resolved]
  - Vomiting [Recovered/Resolved]
  - Dry mouth [Recovered/Resolved]
